FAERS Safety Report 17556749 (Version 3)
Quarter: 2020Q1

REPORT INFORMATION
  Report Type: Report from Study
  Country: ES (occurrence: ES)
  Receive Date: 20200318
  Receipt Date: 20200330
  Transmission Date: 20200409
  Serious: Yes (Life-Threatening, Hospitalization)
  Sender: FDA-Public Use
  Company Number: NVSC2020ES068440

PATIENT
  Age: 65 Year
  Sex: Male
  Weight: 68.6 kg

DRUGS (62)
  1. APIDRA [Concomitant]
     Active Substance: INSULIN GLULISINE
     Dosage: UNK
     Route: 065
     Dates: start: 20200221
  2. APIDRA [Concomitant]
     Active Substance: INSULIN GLULISINE
     Dosage: 100UI/ML
     Route: 065
     Dates: start: 20200306, end: 20200308
  3. AMOXICILINA-CLAVULANICO [Concomitant]
     Active Substance: AMOXICILLIN\CLAVULANATE POTASSIUM
     Indication: LIVER TRANSPLANT
     Dosage: 875 + 125 MG
     Route: 065
     Dates: start: 20200214, end: 20200219
  4. AMOXICILINA-CLAVULANICO [Concomitant]
     Active Substance: AMOXICILLIN\CLAVULANATE POTASSIUM
     Dosage: UNK
     Route: 065
     Dates: start: 20200221, end: 20200224
  5. PREDNISONA [Concomitant]
     Active Substance: PREDNISONE
     Dosage: 50 MG
     Route: 065
     Dates: start: 20200306, end: 20200309
  6. PROGRAF [Concomitant]
     Active Substance: TACROLIMUS
     Dosage: UNK
     Route: 065
     Dates: start: 20200214, end: 20200217
  7. PROGRAF [Concomitant]
     Active Substance: TACROLIMUS
     Dosage: UNK
     Route: 065
     Dates: start: 20200218, end: 20200218
  8. TOUJEO [Concomitant]
     Active Substance: INSULIN GLARGINE
     Indication: TYPE 2 DIABETES MELLITUS
  9. LANTUS [Concomitant]
     Active Substance: INSULIN GLARGINE
     Dosage: 100 UI/ML
     Route: 065
     Dates: start: 20200218, end: 20200221
  10. LANTUS [Concomitant]
     Active Substance: INSULIN GLARGINE
     Dosage: 100 UI/ML
     Route: 065
     Dates: start: 20200308, end: 20200309
  11. AMOXICILINA-CLAVULANICO [Concomitant]
     Active Substance: AMOXICILLIN\CLAVULANATE POTASSIUM
     Dosage: UNK
     Route: 065
     Dates: start: 20200219, end: 20200222
  12. AMOXICILINA-CLAVULANICO [Concomitant]
     Active Substance: AMOXICILLIN\CLAVULANATE POTASSIUM
     Dosage: 1G+200 MG
     Route: 065
     Dates: start: 20200211, end: 20200214
  13. PREDNISONA [Concomitant]
     Active Substance: PREDNISONE
     Dosage: UNK
     Route: 065
     Dates: start: 20200221, end: 20200306
  14. ONDANSETRON [Concomitant]
     Active Substance: ONDANSETRON
     Indication: GENERAL PHYSICAL CONDITION
     Dosage: 4MG/ 2ML INY
     Route: 065
     Dates: start: 20200217
  15. AMLODIPINO [Concomitant]
     Active Substance: AMLODIPINE BESYLATE
     Indication: GENERAL PHYSICAL CONDITION
     Dosage: UNK
     Route: 065
     Dates: start: 20180115, end: 20200221
  16. BEMIPARIN [Concomitant]
     Active Substance: BEMIPARIN
     Indication: LIVER TRANSPLANT
     Dosage: 3.500 UI/0.2 ML
     Route: 065
     Dates: start: 20200210, end: 20200219
  17. APIDRA [Concomitant]
     Active Substance: INSULIN GLULISINE
     Dosage: UNK
     Route: 065
     Dates: start: 20200219
  18. APIDRA [Concomitant]
     Active Substance: INSULIN GLULISINE
     Dosage: 100UI/ML
     Route: 065
     Dates: start: 20200308
  19. FUROSEMIDE. [Concomitant]
     Active Substance: FUROSEMIDE
     Dosage: 40 MG
     Route: 065
     Dates: start: 20200221, end: 20200306
  20. ENOXAPARINA [Concomitant]
     Active Substance: ENOXAPARIN
     Indication: LIVER TRANSPLANT
     Dosage: UNK
     Route: 065
     Dates: start: 20200219, end: 20200306
  21. LORAZEPAM. [Concomitant]
     Active Substance: LORAZEPAM
     Indication: LIVER TRANSPLANT
     Dosage: 1 MG
     Route: 065
     Dates: start: 20200217, end: 20200219
  22. ACETYLSALICYLIC ACID [Concomitant]
     Active Substance: ASPIRIN
     Indication: LIVER TRANSPLANT
     Dosage: 100 MG
     Route: 065
     Dates: start: 20200210, end: 20200219
  23. PARACETAMOL [Concomitant]
     Active Substance: ACETAMINOPHEN
     Indication: LIVER TRANSPLANT
     Dosage: 1 G
     Route: 065
     Dates: start: 20200219, end: 20200221
  24. TOUJEO [Concomitant]
     Active Substance: INSULIN GLARGINE
     Indication: LIVER TRANSPLANT
     Dosage: UNK
     Route: 065
     Dates: start: 20200219
  25. METOCLOPRAMIDE. [Concomitant]
     Active Substance: METOCLOPRAMIDE
     Indication: GENERAL PHYSICAL CONDITION
     Dosage: UNK
     Route: 065
     Dates: start: 20200214
  26. FUROSEMIDE. [Concomitant]
     Active Substance: FUROSEMIDE
     Indication: LIVER TRANSPLANT
     Dosage: 40 MG
     Route: 065
     Dates: start: 20200212
  27. IMMUNOGLOBULIN ANTI-HEPATITIS B SURFACE ANTIG [Concomitant]
     Indication: LIVER TRANSPLANT
     Dosage: 1.000 UI 4ML
     Route: 042
     Dates: start: 20200208, end: 20200215
  28. PROGRAF [Concomitant]
     Active Substance: TACROLIMUS
     Indication: LIVER TRANSPLANT
     Dosage: UNK
     Route: 065
     Dates: start: 20200207, end: 20200213
  29. ENTECAVIR. [Concomitant]
     Active Substance: ENTECAVIR
     Indication: HEPATITIS B SURFACE ANTIGEN
  30. METOCLOPRAMIDE. [Concomitant]
     Active Substance: METOCLOPRAMIDE
     Indication: LIVER TRANSPLANT
     Dosage: 10 MG
     Route: 065
     Dates: start: 20200207, end: 20200214
  31. MYCOPHENOLATE MOFETIL. [Suspect]
     Active Substance: MYCOPHENOLATE MOFETIL
     Indication: LIVER TRANSPLANT
     Dosage: UNK
     Route: 042
     Dates: start: 20200207
  32. APIDRA [Concomitant]
     Active Substance: INSULIN GLULISINE
     Dosage: 100UI/ML
     Route: 065
     Dates: start: 20200218, end: 20200221
  33. METFORMINA [Concomitant]
     Active Substance: METFORMIN HYDROCHLORIDE
     Indication: TYPE 2 DIABETES MELLITUS
     Dosage: 850 MG
     Route: 065
     Dates: start: 20200211, end: 20200219
  34. PROGRAF [Concomitant]
     Active Substance: TACROLIMUS
     Dosage: UNK
     Route: 065
     Dates: start: 20200219, end: 20200221
  35. PROGRAF [Concomitant]
     Active Substance: TACROLIMUS
     Dosage: UNK
     Route: 065
     Dates: start: 20200222, end: 20200227
  36. NISTATINA [Concomitant]
     Active Substance: NYSTATIN
     Indication: LIVER TRANSPLANT
     Dosage: 1.000.000 UI/10ML
     Route: 048
     Dates: start: 20200207, end: 20200219
  37. NISTATINA [Concomitant]
     Active Substance: NYSTATIN
     Indication: GENERAL PHYSICAL CONDITION
     Dosage: UNK
     Route: 065
     Dates: start: 20200311
  38. OMEPRAZOL [Concomitant]
     Active Substance: OMEPRAZOLE
     Indication: LIVER TRANSPLANT
     Dosage: 20 MG
     Route: 065
     Dates: start: 20200208, end: 20200309
  39. HIDROCLOROTIAZIDA [Concomitant]
     Active Substance: HYDROCHLOROTHIAZIDE
     Indication: HYPERTENSION
     Dosage: 12.5 MG
     Route: 065
     Dates: start: 20180115, end: 20200221
  40. ISCALIMAB [Suspect]
     Active Substance: ISCALIMAB
     Indication: LIVER TRANSPLANT
     Dosage: 30 MG/KG, ONCE/SINGLE
     Route: 058
     Dates: start: 20200214
  41. METAMIZOL [Concomitant]
     Active Substance: METAMIZOLE SODIUM
     Indication: LIVER TRANSPLANT
     Dosage: 575 MG
     Route: 065
     Dates: start: 20200219, end: 20200221
  42. ALBUMINA [Concomitant]
     Active Substance: ALBUMIN HUMAN
     Indication: LIVER TRANSPLANT
     Dosage: 20% 10G/50ML
     Route: 065
     Dates: start: 20200212, end: 20200214
  43. VALSARTAN. [Concomitant]
     Active Substance: VALSARTAN
     Indication: HYPERTENSION
     Dosage: 160 MG
     Route: 065
     Dates: start: 20180115, end: 20200221
  44. AMLODIPINO [Concomitant]
     Active Substance: AMLODIPINE BESYLATE
     Indication: LIVER TRANSPLANT
     Dosage: 5 MG
     Route: 065
     Dates: start: 20200208, end: 20200219
  45. COTRIMOXAZOL [Concomitant]
     Active Substance: SULFAMETHOXAZOLE\TRIMETHOPRIM
     Indication: LIVER TRANSPLANT
     Dosage: UNK
     Route: 065
     Dates: start: 20200208, end: 20200309
  46. LANTUS [Concomitant]
     Active Substance: INSULIN GLARGINE
     Indication: TYPE 2 DIABETES MELLITUS
     Dosage: 100 UI/ML
     Route: 065
     Dates: start: 20200210, end: 20200218
  47. APIDRA [Concomitant]
     Active Substance: INSULIN GLULISINE
     Indication: TYPE 2 DIABETES MELLITUS
     Dosage: 100UI/ML
     Route: 065
     Dates: start: 20200210, end: 20200218
  48. PREDNISONA [Concomitant]
     Active Substance: PREDNISONE
     Indication: LIVER TRANSPLANT
     Dosage: 10 MG
     Route: 065
     Dates: start: 20200207, end: 20200217
  49. PREDNISONA [Concomitant]
     Active Substance: PREDNISONE
     Dosage: 10 MG
     Route: 065
     Dates: start: 20200217, end: 20200218
  50. PREDNISONA [Concomitant]
     Active Substance: PREDNISONE
     Dosage: 50 MG
     Route: 065
     Dates: start: 20200309, end: 20200309
  51. PROGRAF [Concomitant]
     Active Substance: TACROLIMUS
     Dosage: UNK
     Route: 065
     Dates: start: 20200217, end: 20200218
  52. CHLORHEXIDIN [Concomitant]
     Active Substance: CHLORHEXIDINE
     Indication: GENERAL PHYSICAL CONDITION
     Dosage: 0.12% SOBRE 12ML
     Route: 042
     Dates: start: 20200207, end: 20200219
  53. MYCOPHENOLATE MOFETIL. [Suspect]
     Active Substance: MYCOPHENOLATE MOFETIL
     Indication: LIVER TRANSPLANT
     Dosage: UNK
     Route: 048
     Dates: start: 20200207
  54. TACROLIMUS. [Suspect]
     Active Substance: TACROLIMUS
     Indication: LIVER TRANSPLANT
     Dosage: UNK
     Route: 048
     Dates: start: 20200207
  55. TACROLIMUS. [Suspect]
     Active Substance: TACROLIMUS
     Dosage: UNK
     Route: 048
     Dates: start: 20200214
  56. LANTUS [Concomitant]
     Active Substance: INSULIN GLARGINE
     Dosage: 100 UI/ML
     Route: 065
     Dates: start: 20200218, end: 20200219
  57. METFORMINA [Concomitant]
     Active Substance: METFORMIN HYDROCHLORIDE
     Dosage: 850 MG
     Route: 065
     Dates: start: 20200219
  58. PREDNISONA [Concomitant]
     Active Substance: PREDNISONE
     Dosage: 10 MG
     Route: 065
     Dates: start: 20200218, end: 20200221
  59. EXFORGE [Concomitant]
     Active Substance: AMLODIPINE BESYLATE\VALSARTAN
     Indication: HYPERTENSION
     Dosage: UNK
     Route: 065
     Dates: start: 20200221
  60. LINAGLIPTINA [Concomitant]
     Active Substance: LINAGLIPTIN
     Indication: TYPE 2 DIABETES MELLITUS
     Dosage: 5 MG
     Route: 065
     Dates: start: 20200219
  61. ENTECAVIR. [Concomitant]
     Active Substance: ENTECAVIR
     Indication: LIVER TRANSPLANT
     Dosage: 0.5 MG
     Route: 065
     Dates: start: 20200207
  62. PARACETAMOL [Concomitant]
     Active Substance: ACETAMINOPHEN
     Dosage: 1 G
     Route: 065
     Dates: start: 20200210, end: 20200214

REACTIONS (2)
  - Graft versus host disease [Not Recovered/Not Resolved]
  - Rash [Not Recovered/Not Resolved]

NARRATIVE: CASE EVENT DATE: 20200305
